FAERS Safety Report 7544927-0 (Version None)
Quarter: 2011Q2

REPORT INFORMATION
  Report Type: 
  Country: None (occurrence: None)
  Receive Date: 20110614
  Receipt Date: 20110526
  Transmission Date: 20111010
  Serious: Yes (Hospitalization, Other)
  Sender: FDA-Public Use
  Company Number: US-BAYER-201023264NA

PATIENT
  Age: 39 Year
  Sex: Female
  Weight: 63.492 kg

DRUGS (8)
  1. ATIVAN [Concomitant]
  2. UNKNOWN DRUG [Concomitant]
     Indication: ANXIETY
  3. PAXIL [Concomitant]
  4. YAZ [Suspect]
     Indication: ACNE
  5. YAZ [Suspect]
     Indication: CONTRACEPTION
     Route: 048
     Dates: start: 20070301, end: 20070601
  6. NEXIUM [Concomitant]
  7. XANAX [Concomitant]
  8. LORAZEPAM [Concomitant]

REACTIONS (4)
  - PULMONARY EMBOLISM [None]
  - PULMONARY THROMBOSIS [None]
  - DEEP VEIN THROMBOSIS [None]
  - MENTAL DISORDER [None]
